FAERS Safety Report 4305510-3 (Version None)
Quarter: 2004Q1

REPORT INFORMATION
  Report Type: 
  Country: None (occurrence: None)
  Receive Date: 20040226
  Receipt Date: 20031110
  Transmission Date: 20041129
  Serious: No
  Sender: FDA-Public Use
  Company Number: US-BRISTOL-MYERS SQUIBB COMPANY-12432209

PATIENT
  Sex: Female

DRUGS (2)
  1. ABILIFY [Suspect]
  2. ALCOHOL [Interacting]

REACTIONS (2)
  - ALCOHOL INTERACTION [None]
  - SEDATION [None]
